FAERS Safety Report 9172700 (Version 1)
Quarter: 2013Q1

REPORT INFORMATION
  Report Type: Spontaneous
  Country: CA (occurrence: CA)
  Receive Date: 20130319
  Receipt Date: 20130319
  Transmission Date: 20140127
  Serious: Yes (Other)
  Sender: FDA-Public Use
  Company Number: CA-GILEAD-2013-0071348

PATIENT
  Sex: Female

DRUGS (10)
  1. AMBRISENTAN [Suspect]
     Indication: PULMONARY ARTERIAL HYPERTENSION
     Dosage: 5MG PER DAY
     Route: 048
     Dates: start: 20120830
  2. DOMPERIDONE [Concomitant]
  3. ADVAIR [Concomitant]
  4. PARIET [Concomitant]
  5. ADCIRCA [Concomitant]
  6. LASIX                              /00032601/ [Concomitant]
  7. WARFARIN [Concomitant]
  8. VENTOLIN                           /00139501/ [Concomitant]
  9. FLONASE [Concomitant]
  10. AERIUS                             /01009701/ [Concomitant]

REACTIONS (4)
  - Gallbladder disorder [Recovered/Resolved]
  - Biliary colic [Recovered/Resolved]
  - Cholelithiasis [Recovered/Resolved]
  - Gallbladder operation [Recovered/Resolved]
